FAERS Safety Report 8201964-0 (Version None)
Quarter: 2012Q1

REPORT INFORMATION
  Report Type: 
  Country: None (occurrence: None)
  Receive Date: 20120312
  Receipt Date: 20120305
  Transmission Date: 20120608
  Serious: Yes (Other)
  Sender: FDA-Public Use
  Company Number: PHHY2012SG020023

PATIENT
  Sex: Male

DRUGS (3)
  1. INSULIN [Concomitant]
  2. EXFORGE [Suspect]
     Indication: BLOOD PRESSURE
     Dosage: 1 DF (160 MG VALSAR AND 10 MG AMLO), UNK
  3. EXFORGE [Suspect]
     Dosage: 1 DF (80 MG VALSAR AND 5 MG AMLO), UNK

REACTIONS (2)
  - LIVER FUNCTION TEST ABNORMAL [None]
  - GAMMA-GLUTAMYLTRANSFERASE INCREASED [None]
